FAERS Safety Report 12293404 (Version 1)
Quarter: 2016Q2

REPORT INFORMATION
  Report Type: Spontaneous
  Country: ES (occurrence: ES)
  Receive Date: 20160421
  Receipt Date: 20160421
  Transmission Date: 20160815
  Serious: Yes (Other)
  Sender: FDA-Public Use
  Company Number: ES-SA-2015SA061393

PATIENT
  Age: 30 Year
  Sex: Female

DRUGS (3)
  1. LEMTRADA [Suspect]
     Active Substance: ALEMTUZUMAB
     Indication: MULTIPLE SCLEROSIS
     Route: 041
     Dates: start: 20150323, end: 20150327
  2. OXCARBAZEPINE. [Concomitant]
     Active Substance: OXCARBAZEPINE
  3. GABAPENTIN. [Concomitant]
     Active Substance: GABAPENTIN

REACTIONS (6)
  - Lymphadenitis [Unknown]
  - Abdominal pain [Unknown]
  - Rash [Recovered/Resolved]
  - Escherichia urinary tract infection [Unknown]
  - Urinary sediment present [Unknown]
  - Proteinuria [Unknown]

NARRATIVE: CASE EVENT DATE: 2015
